FAERS Safety Report 21788249 (Version 1)
Quarter: 2022Q4

REPORT INFORMATION
  Report Type: Spontaneous
  Country: US (occurrence: US)
  Receive Date: 20221228
  Receipt Date: 20221228
  Transmission Date: 20230112
  Serious: No
  Sender: FDA-Public Use
  Company Number: US-BAYER-2022A171697

PATIENT
  Age: 24 Year
  Sex: Female

DRUGS (3)
  1. MIRENA [Suspect]
     Active Substance: LEVONORGESTREL
     Indication: Contraception
     Dosage: 20?G/DAY
     Route: 015
     Dates: start: 20221212
  2. TYLENOL [Concomitant]
     Active Substance: ACETAMINOPHEN
  3. MOTRIN IB [Suspect]
     Active Substance: IBUPROFEN

REACTIONS (5)
  - Device use issue [Recovered/Resolved]
  - Device difficult to use [Recovered/Resolved]
  - Procedural pain [Recovered/Resolved]
  - Device expulsion [Recovered/Resolved]
  - Uterine malposition [Recovered/Resolved]

NARRATIVE: CASE EVENT DATE: 20221213
